FAERS Safety Report 5663659-7 (Version None)
Quarter: 2008Q1

REPORT INFORMATION
  Report Type: 
  Country: None (occurrence: None)
  Receive Date: 20080310
  Receipt Date: 20080221
  Transmission Date: 20080703
  Serious: Yes (Other)
  Sender: FDA-Public Use
  Company Number: 2007EU002614

PATIENT
  Age: 65 Year
  Sex: Male
  Weight: 69.7 kg

DRUGS (4)
  1. PROGRAF [Suspect]
     Indication: RENAL TRANSPLANT
     Dosage: 3.5 MG, /D
     Dates: start: 20030208
  2. TAZOCEL (RIPERACILLIN SODIUM, TAZOBACTAM SODIUM) [Suspect]
     Indication: CHOLECYSTITIS
     Dosage: 4.5 G, QID, IV NOS
     Route: 042
     Dates: start: 20071008, end: 20071016
  3. PREDNISOLONE ACETATE [Concomitant]
  4. ACETAMINOPHEN [Concomitant]

REACTIONS (3)
  - CHOLECYSTITIS [None]
  - DRUG INTERACTION [None]
  - DRUG LEVEL INCREASED [None]
